FAERS Safety Report 13456666 (Version 2)
Quarter: 2017Q2

REPORT INFORMATION
  Report Type: Report from Study
  Country: GB (occurrence: GB)
  Receive Date: 20170418
  Receipt Date: 20170504
  Transmission Date: 20170830
  Serious: Yes (Other)
  Sender: FDA-Public Use
  Company Number: GB-OTSUKA-2017_008377

PATIENT
  Age: 61 Year
  Sex: Male

DRUGS (4)
  1. BUSULFAN. [Suspect]
     Active Substance: BUSULFAN
     Dosage: 1.6 MG/KG, ON DAY -3
     Route: 042
  2. FLUDARABINE [Suspect]
     Active Substance: FLUDARABINE PHOSPHATE
     Indication: MYELOFIBROSIS
     Dosage: UNK
     Route: 065
  3. BUSULFAN. [Suspect]
     Active Substance: BUSULFAN
     Indication: MYELOFIBROSIS
     Dosage: 3.2 MG/KG, QD (1/DAY), OVER 3 HOURS ON DAYS -5 TO -4
     Route: 042
  4. ANTITHYMOCYTE IMMUNOGLOBULIN [Suspect]
     Active Substance: THYMOCYTE IMMUNE GLOBULIN NOS
     Indication: MYELOFIBROSIS
     Dosage: UNK
     Route: 065

REACTIONS (6)
  - Acute kidney injury [Unknown]
  - Renal failure [Unknown]
  - Venoocclusive liver disease [Recovered/Resolved]
  - Hepatic failure [Unknown]
  - Hepatic encephalopathy [Unknown]
  - Hepatorenal syndrome [Unknown]
